FAERS Safety Report 17471645 (Version 1)
Quarter: 2020Q1

REPORT INFORMATION
  Report Type: Spontaneous
  Country: US (occurrence: US)
  Receive Date: 20200228
  Receipt Date: 20200228
  Transmission Date: 20200409
  Serious: No
  Sender: FDA-Public Use
  Company Number: US-ASTRAZENECA-2020SE16089

PATIENT
  Sex: Female
  Weight: 59.9 kg

DRUGS (2)
  1. SYMBICORT [Suspect]
     Active Substance: BUDESONIDE\FORMOTEROL FUMARATE DIHYDRATE
     Indication: CHRONIC OBSTRUCTIVE PULMONARY DISEASE
     Dosage: 160/4.5 MCG, 2 PUFFS TWO TIMES A DAY
     Route: 055
  2. INCRUSE ELLIPTA [Concomitant]
     Active Substance: UMECLIDINIUM BROMIDE
     Dosage: 1 PUFF EVERY DAY
     Route: 055

REACTIONS (5)
  - Dyspnoea [Unknown]
  - Weight increased [Not Recovered/Not Resolved]
  - Somnolence [Unknown]
  - Device issue [Not Recovered/Not Resolved]
  - Hyperphagia [Not Recovered/Not Resolved]
